FAERS Safety Report 19862635 (Version 1)
Quarter: 2021Q3

REPORT INFORMATION
  Report Type: Spontaneous
  Country: NL (occurrence: DE)
  Receive Date: 20210921
  Receipt Date: 20210921
  Transmission Date: 20211014
  Serious: Yes (Hospitalization)
  Sender: FDA-Public Use
  Company Number: DE-FRESENIUS KABI-FK202109976

PATIENT
  Age: 56 Year
  Sex: Female

DRUGS (40)
  1. CARBOPLATIN (MANUFACTURER UNKNOWN) [Suspect]
     Active Substance: CARBOPLATIN
     Indication: OVARIAN CANCER
     Route: 065
     Dates: start: 20191214, end: 20191214
  2. PACLITAXEL (MANUFACTURER UNKNOWN) [Suspect]
     Active Substance: PACLITAXEL
     Indication: OVARIAN CANCER
     Route: 065
     Dates: start: 20191213, end: 20191213
  3. DURVALUMAB. [Suspect]
     Active Substance: DURVALUMAB
     Route: 042
     Dates: start: 20200417, end: 20200417
  4. BEVACIZUMAB. [Concomitant]
     Active Substance: BEVACIZUMAB
     Dosage: 1170 MG ONCE/SINGLE ADMINISTRATION
     Route: 065
     Dates: start: 20191121, end: 20191121
  5. BEVACIZUMAB. [Concomitant]
     Active Substance: BEVACIZUMAB
     Dosage: 1245 MG ONCE/SINGLE ADMINISTRATION
     Route: 065
     Dates: start: 20200417, end: 20200417
  6. BEVACIZUMAB. [Concomitant]
     Active Substance: BEVACIZUMAB
     Dosage: 1110 MG ONCE/SINGLE ADMINISTRATION
     Route: 065
     Dates: start: 20200123, end: 20200123
  7. BEVACIZUMAB. [Concomitant]
     Active Substance: BEVACIZUMAB
     Dosage: 1380 MG ONCE/SINGLE ADMINISTRATION
     Route: 065
     Dates: start: 20200907, end: 20200907
  8. CARBOPLATIN (MANUFACTURER UNKNOWN) [Suspect]
     Active Substance: CARBOPLATIN
     Route: 065
     Dates: start: 20200306, end: 20200306
  9. PACLITAXEL (MANUFACTURER UNKNOWN) [Suspect]
     Active Substance: PACLITAXEL
     Route: 065
     Dates: start: 20200103, end: 20200103
  10. DURVALUMAB. [Suspect]
     Active Substance: DURVALUMAB
     Route: 042
     Dates: start: 20200305, end: 20200305
  11. DURVALUMAB. [Suspect]
     Active Substance: DURVALUMAB
     Route: 042
     Dates: start: 20200529, end: 20200529
  12. DURVALUMAB. [Suspect]
     Active Substance: DURVALUMAB
     Route: 042
     Dates: start: 20191213, end: 20191213
  13. BEVACIZUMAB. [Concomitant]
     Active Substance: BEVACIZUMAB
     Indication: OVARIAN CANCER
     Dosage: 1222 MG ONCE/SINGLE ADMINISTRATION
     Route: 065
     Dates: start: 20200305, end: 20200305
  14. BEVACIZUMAB. [Concomitant]
     Active Substance: BEVACIZUMAB
     Dosage: 1260 MG ONCE/SINGLE ADMINISTRATION
     Route: 065
     Dates: start: 20200529, end: 20200529
  15. BEVACIZUMAB. [Concomitant]
     Active Substance: BEVACIZUMAB
     Dosage: 1245 MG ONCE/SINGLE ADMINISTRATION
     Route: 065
     Dates: start: 20200327, end: 20200327
  16. BEVACIZUMAB. [Concomitant]
     Active Substance: BEVACIZUMAB
     Dosage: 1350 MG ONCE/SINGLE ADMINISTRATION
     Route: 065
     Dates: start: 20200817, end: 20200817
  17. LEVODOPA/CARBIDOPA [Concomitant]
     Active Substance: CARBIDOPA\LEVODOPA
     Indication: RHEUMATOID ARTHRITIS
     Dosage: 100/25MG DAILY DOSE
     Route: 048
     Dates: start: 2000
  18. CARBOPLATIN (MANUFACTURER UNKNOWN) [Suspect]
     Active Substance: CARBOPLATIN
     Route: 065
     Dates: start: 20200124, end: 20200124
  19. CARBOPLATIN (MANUFACTURER UNKNOWN) [Suspect]
     Active Substance: CARBOPLATIN
     Route: 065
     Dates: start: 20200103, end: 20200103
  20. PACLITAXEL (MANUFACTURER UNKNOWN) [Suspect]
     Active Substance: PACLITAXEL
     Route: 065
     Dates: start: 20200213, end: 20200213
  21. DURVALUMAB. [Suspect]
     Active Substance: DURVALUMAB
     Route: 042
     Dates: start: 20200103, end: 20200103
  22. PROMETHAZINE [Concomitant]
     Active Substance: PROMETHAZINE HYDROCHLORIDE
     Indication: RESTLESS LEGS SYNDROME
     Route: 048
     Dates: start: 2000
  23. PACLITAXEL (MANUFACTURER UNKNOWN) [Suspect]
     Active Substance: PACLITAXEL
     Route: 065
     Dates: start: 20200305, end: 20200306
  24. PANTOPRAZOLE SODIUM SESQUIHYDRATE [Concomitant]
     Active Substance: PANTOPRAZOLE SODIUM
     Indication: PROPHYLAXIS
     Route: 048
     Dates: start: 2000
  25. BEVACIZUMAB. [Concomitant]
     Active Substance: BEVACIZUMAB
     Dosage: 1185 MG ONCE/SINGLE ADMINISTRATION
     Route: 065
     Dates: start: 20200213, end: 20200213
  26. BEVACIZUMAB. [Concomitant]
     Active Substance: BEVACIZUMAB
     Dosage: 110 MG ONCE/SINGLE ADMINISTRATION
     Route: 065
     Dates: start: 20191213, end: 20191213
  27. PAROXETINE. [Concomitant]
     Active Substance: PAROXETINE
     Indication: DEPRESSION
     Route: 048
     Dates: start: 2000
  28. PACLITAXEL (MANUFACTURER UNKNOWN) [Suspect]
     Active Substance: PACLITAXEL
     Route: 065
     Dates: start: 20200123, end: 20200123
  29. BEVACIZUMAB. [Concomitant]
     Active Substance: BEVACIZUMAB
     Dosage: 1260 MG ONCE/SINGLE ADMINISTRATION
     Route: 065
     Dates: start: 20200508, end: 20200508
  30. CARBOPLATIN (MANUFACTURER UNKNOWN) [Suspect]
     Active Substance: CARBOPLATIN
     Route: 065
     Dates: start: 20191121, end: 20191121
  31. PACLITAXEL (MANUFACTURER UNKNOWN) [Suspect]
     Active Substance: PACLITAXEL
     Route: 065
     Dates: start: 20191121, end: 20191121
  32. DURVALUMAB. [Suspect]
     Active Substance: DURVALUMAB
     Route: 042
     Dates: start: 20200327, end: 20200327
  33. BEVACIZUMAB. [Concomitant]
     Active Substance: BEVACIZUMAB
     Dosage: 1110 MG ONCE/SINGLE ADMINISTRATION
     Route: 065
     Dates: start: 20200103, end: 20200103
  34. LEVOTHYROXINE SODIUM. [Concomitant]
     Active Substance: LEVOTHYROXINE SODIUM
     Indication: HYPOTHYROIDISM
     Route: 048
     Dates: start: 2000
  35. CARBOPLATIN (MANUFACTURER UNKNOWN) [Suspect]
     Active Substance: CARBOPLATIN
     Route: 065
     Dates: start: 20200213, end: 20200214
  36. DURVALUMAB. [Suspect]
     Active Substance: DURVALUMAB
     Indication: OVARIAN CANCER
     Route: 042
     Dates: start: 20200123, end: 20200123
  37. BEVACIZUMAB. [Concomitant]
     Active Substance: BEVACIZUMAB
     Dosage: 1290 MG ONCE/SINGLE ADMINISTRATION
     Route: 065
     Dates: start: 20200727, end: 20200727
  38. DURVALUMAB. [Suspect]
     Active Substance: DURVALUMAB
     Route: 042
     Dates: start: 20200508, end: 20200508
  39. DURVALUMAB. [Suspect]
     Active Substance: DURVALUMAB
     Route: 042
     Dates: start: 20200213, end: 20200213
  40. BEVACIZUMAB. [Concomitant]
     Active Substance: BEVACIZUMAB
     Dosage: 1275 MG ONCE/SINGLE ADMINISTRATION
     Route: 065
     Dates: start: 20200623, end: 20200623

REACTIONS (1)
  - Respiratory tract infection [Recovered/Resolved]

NARRATIVE: CASE EVENT DATE: 20191223
